FAERS Safety Report 17059312 (Version 1)
Quarter: 2019Q4

REPORT INFORMATION
  Report Type: Spontaneous
  Country: GB (occurrence: GB)
  Receive Date: 20191121
  Receipt Date: 20191121
  Transmission Date: 20200122
  Serious: Yes (Hospitalization)
  Sender: FDA-Public Use
  Company Number: GB-PFIZER INC-2019499808

PATIENT
  Age: 23 Year
  Sex: Female
  Weight: 75.2 kg

DRUGS (2)
  1. FLUCONAZOLE. [Suspect]
     Active Substance: FLUCONAZOLE
     Dosage: 50 MG, 1X/DAY
     Route: 048
  2. PIVMECILLINAM HYDROCHLORIDE. [Concomitant]
     Active Substance: PIVMECILLINAM HYDROCHLORIDE
     Dosage: UNK

REACTIONS (2)
  - Stevens-Johnson syndrome [Unknown]
  - Erythema multiforme [Unknown]
